FAERS Safety Report 17521126 (Version 1)
Quarter: 2020Q1

REPORT INFORMATION
  Report Type: Spontaneous
  Country: SE (occurrence: SE)
  Receive Date: 20200310
  Receipt Date: 20200310
  Transmission Date: 20200409
  Serious: Yes (Hospitalization)
  Sender: FDA-Public Use
  Company Number: SE-MYLANLABS-2020M1024289

PATIENT
  Age: 40 Year
  Sex: Female
  Weight: 58 kg

DRUGS (2)
  1. IBUPROFEN. [Suspect]
     Active Substance: IBUPROFEN
     Indication: NECK PAIN
     Dosage: 800 MILLIGRAM
  2. VALACICLOVIR MYLAN 500 MG, COMPRIM? PELLICUL? [Suspect]
     Active Substance: VALACYCLOVIR HYDROCHLORIDE
     Indication: HERPES ZOSTER
     Dosage: 1500 MILLIGRAM, QD
     Dates: start: 20181101

REACTIONS (1)
  - Pain [Not Recovered/Not Resolved]

NARRATIVE: CASE EVENT DATE: 20181101
